FAERS Safety Report 4672773-4 (Version None)
Quarter: 2005Q2

REPORT INFORMATION
  Report Type: 
  Country: None (occurrence: None)
  Receive Date: 20050523
  Receipt Date: 20050510
  Transmission Date: 20051028
  Serious: Yes (Hospitalization)
  Sender: FDA-Public Use
  Company Number: 2005073121

PATIENT
  Age: 40 Year
  Sex: Female
  Weight: 62.6 kg

DRUGS (4)
  1. EPIRUBICIN [Suspect]
     Indication: ILL-DEFINED DISORDER
  2. FLUOROURACIL [Suspect]
     Indication: ILL-DEFINED DISORDER
     Dosage: 1000 MG (TWICE DAILY)
     Dates: start: 20040602
  3. CYCLOPHOSPHAMIDE [Suspect]
     Indication: ILL-DEFINED DISORDER
     Dosage: 1000 MG (TWICE DAILY)
     Dates: start: 20040604
  4. ZOLEDRONIC ACID (ZOLEDRONIC ACID) [Suspect]
     Indication: METASTASES TO BONE
     Dosage: 4 MG (TWICE DAILY), INTRAVENOUS
     Route: 042
     Dates: start: 20040602

REACTIONS (4)
  - BACK PAIN [None]
  - DIARRHOEA [None]
  - PYREXIA [None]
  - VOMITING [None]
